FAERS Safety Report 7311835-X (Version None)
Quarter: 2011Q1

REPORT INFORMATION
  Report Type: 
  Country: None (occurrence: None)
  Receive Date: 20110224
  Receipt Date: 20110208
  Transmission Date: 20110831
  Serious: Yes (Other)
  Sender: FDA-Public Use
  Company Number: US-BAYER-201035525NA

PATIENT
  Sex: Female
  Weight: 88.435 kg

DRUGS (8)
  1. ADVAIR DISKUS 100/50 [Concomitant]
     Route: 049
  2. IBUPROFEN [Concomitant]
     Dosage: UNK UNK, PRN
  3. YAZ [Suspect]
     Indication: ORAL CONTRACEPTION
     Dosage: UNK UNK, UNK
     Route: 048
     Dates: start: 20070701, end: 20100301
  4. OCELLA [Suspect]
     Indication: ORAL CONTRACEPTION
     Route: 048
     Dates: start: 20060101
  5. PROAIR HFA [Concomitant]
     Dosage: 90 ?G, UNK
  6. FLUOXETINE [Concomitant]
     Dosage: 20 MG, BID
     Route: 048
  7. SINGULAIR [Concomitant]
  8. YASMIN [Suspect]
     Indication: ORAL CONTRACEPTION
     Dosage: UNK UNK, UNK
     Route: 048
     Dates: start: 20050701, end: 20070601

REACTIONS (7)
  - MYOCARDIAL INFARCTION [None]
  - ABDOMINAL PAIN UPPER [None]
  - MENTAL DISORDER [None]
  - DEEP VEIN THROMBOSIS [None]
  - CEREBROVASCULAR ACCIDENT [None]
  - PULMONARY EMBOLISM [None]
  - CHOLECYSTITIS [None]
